FAERS Safety Report 4847678-6 (Version None)
Quarter: 2005Q4

REPORT INFORMATION
  Report Type: 
  Country: None (occurrence: None)
  Receive Date: 20051205
  Receipt Date: 20050914
  Transmission Date: 20060501
  Serious: Yes (Other)
  Sender: FDA-Public Use
  Company Number: 2005-CZ-01175

PATIENT
  Age: 46 Year
  Sex: Female

DRUGS (1)
  1. PREDNISOLONE [Suspect]
     Indication: MULTIPLE SCLEROSIS
     Dosage: 500 MG TO 1000 MG
     Dates: start: 19930101, end: 20030101

REACTIONS (2)
  - DRUG EFFECT DECREASED [None]
  - HEPATITIS ACUTE [None]
